FAERS Safety Report 12670253 (Version 3)
Quarter: 2017Q2

REPORT INFORMATION
  Report Type: Spontaneous
  Country: IE (occurrence: IE)
  Receive Date: 20160821
  Receipt Date: 20170620
  Transmission Date: 20170830
  Serious: Yes (Hospitalization)
  Sender: FDA-Public Use
  Company Number: IE-MYLANLABS-2016M1034949

PATIENT

DRUGS (1)
  1. CLOZARIL [Suspect]
     Active Substance: CLOZAPINE
     Indication: SCHIZOPHRENIA
     Dosage: UNK
     Route: 048
     Dates: start: 20120301, end: 20170613

REACTIONS (5)
  - Self-injurious ideation [Unknown]
  - Mental impairment [Unknown]
  - White blood cell count increased [Unknown]
  - Neoplasm malignant [Unknown]
  - Hallucination [Unknown]

NARRATIVE: CASE EVENT DATE: 20140324
